FAERS Safety Report 8168254-6 (Version None)
Quarter: 2012Q1

REPORT INFORMATION
  Report Type: 
  Country: None (occurrence: None)
  Receive Date: 20120227
  Receipt Date: 20120224
  Transmission Date: 20120608
  Serious: Yes (Death, Hospitalization, Other)
  Sender: FDA-Public Use
  Company Number: PHFR2011IE04660

PATIENT
  Sex: Male
  Weight: 79 kg

DRUGS (2)
  1. CLOZARIL [Suspect]
     Indication: SCHIZOPHRENIA
     Route: 048
     Dates: start: 20030121
  2. CLOZARIL [Suspect]
     Dosage: 400 MG, UNK
     Route: 048

REACTIONS (14)
  - DEATH [None]
  - LUNG CARCINOMA CELL TYPE UNSPECIFIED STAGE IV [None]
  - PAIN [None]
  - CONSTIPATION [None]
  - PLATELET COUNT INCREASED [None]
  - DIFFERENTIAL WHITE BLOOD CELL COUNT ABNORMAL [None]
  - WEIGHT DECREASED [None]
  - LUNG CANCER METASTATIC [None]
  - NEUTROPHIL COUNT INCREASED [None]
  - INFLUENZA LIKE ILLNESS [None]
  - WHITE BLOOD CELL COUNT INCREASED [None]
  - METASTASES TO BONE [None]
  - EOSINOPHIL COUNT INCREASED [None]
  - COUGH [None]
